FAERS Safety Report 20546836 (Version 1)
Quarter: 2022Q1

REPORT INFORMATION
  Report Type: Spontaneous
  Country: CN (occurrence: CN)
  Receive Date: 20220303
  Receipt Date: 20220303
  Transmission Date: 20220423
  Serious: Yes (Other)
  Sender: FDA-Public Use
  Company Number: CN-PFIZER INC-202200322318

PATIENT
  Age: 41 Year
  Sex: Female
  Weight: 47 kg

DRUGS (1)
  1. METHOTREXATE [Suspect]
     Active Substance: METHOTREXATE
     Indication: Ectopic pregnancy
     Dosage: 20 MG, 1X/DAY
     Route: 041
     Dates: start: 20220211, end: 20220215

REACTIONS (9)
  - Drug hypersensitivity [Recovering/Resolving]
  - Dry mouth [Recovering/Resolving]
  - Pruritus [Recovering/Resolving]
  - Abscess [Recovering/Resolving]
  - Necrosis [Recovering/Resolving]
  - Rash [Recovering/Resolving]
  - Skin ulcer [Recovering/Resolving]
  - Herpes virus infection [Recovering/Resolving]
  - Off label use [Unknown]

NARRATIVE: CASE EVENT DATE: 20220211
